FAERS Safety Report 6573113-6 (Version None)
Quarter: 2010Q1

REPORT INFORMATION
  Report Type: 
  Country: None (occurrence: None)
  Receive Date: 20100208
  Receipt Date: 20100127
  Transmission Date: 20100710
  Serious: Yes (Other)
  Sender: FDA-Public Use
  Company Number: BR-JNJFOC-20100201842

PATIENT
  Sex: Female
  Weight: 71 kg

DRUGS (11)
  1. REMINYL ER [Suspect]
     Indication: MENTAL DISORDER
     Route: 048
  2. ARADOIS H [Concomitant]
     Indication: HYPERTENSION
     Route: 065
  3. FERROUS SULFATE TAB [Concomitant]
     Indication: ANAEMIA
     Route: 065
  4. NIMODIPINE [Concomitant]
     Indication: MENTAL DISORDER
     Dosage: SINCE 2 YEARS
     Route: 065
  5. DIHYDROERGOCRISTINE [Concomitant]
     Indication: MENTAL DISORDER
     Route: 065
  6. CITALOPRAM [Concomitant]
     Indication: MENTAL DISORDER
     Route: 065
  7. CASCARA TAB [Concomitant]
     Indication: MENTAL DISORDER
     Route: 065
  8. PHOSPHATIDYL SERINE [Concomitant]
     Indication: MENTAL DISORDER
     Route: 065
  9. CLOXAZOLAM [Concomitant]
     Indication: MENTAL DISORDER
     Route: 065
  10. GLUCOSAMINE SULFATE [Concomitant]
     Indication: OSTEOARTHRITIS
     Dosage: 1 SACHET PER DAY
     Route: 065
  11. OMEPRAZOLE [Concomitant]
     Indication: GASTROINTESTINAL DISORDER THERAPY
     Route: 065

REACTIONS (7)
  - ABNORMAL DREAMS [None]
  - DIARRHOEA [None]
  - DIZZINESS [None]
  - DRUG PRESCRIBING ERROR [None]
  - MEDICATION ERROR [None]
  - NAUSEA [None]
  - VOMITING [None]
